FAERS Safety Report 6916659-0 (Version None)
Quarter: 2010Q3

REPORT INFORMATION
  Report Type: 
  Country: None (occurrence: None)
  Receive Date: 20100809
  Receipt Date: 20100809
  Transmission Date: 20110219
  Serious: Yes (Other)
  Sender: FDA-Public Use
  Company Number: None

PATIENT
  Age: 68 Year
  Sex: Male
  Weight: 72.5755 kg

DRUGS (1)
  1. ZYCAM NASAL GEL ZINCOM GLUCONICUM 2X ZYCAM [Suspect]
     Indication: NASOPHARYNGITIS
     Dates: start: 20080408, end: 20090109

REACTIONS (1)
  - ANOSMIA [None]
